FAERS Safety Report 9841111 (Version 2)
Quarter: 2014Q2

REPORT INFORMATION
  Report Type: Spontaneous
  Country: FR (occurrence: FR)
  Receive Date: 20140124
  Receipt Date: 20140401
  Transmission Date: 20141212
  Serious: Yes (Disabling, Other)
  Sender: FDA-Public Use
  Company Number: FR-ASTRAZENECA-2014SE04246

PATIENT
  Age: 29 Year
  Sex: Female

DRUGS (7)
  1. XEROQUEL [Suspect]
     Indication: BIPOLAR DISORDER
     Route: 048
     Dates: start: 201301
  2. AVLOCARDYL [Suspect]
     Route: 065
     Dates: start: 201312
  3. DEROXAT [Suspect]
     Route: 065
     Dates: start: 201401
  4. DEROXAT [Suspect]
     Route: 065
  5. TERCIAN [Concomitant]
     Indication: ANXIETY
     Dates: start: 201301
  6. ALPRAZOLAM [Concomitant]
     Indication: ANXIETY
     Dates: start: 201301
  7. ATARAX [Concomitant]
     Indication: ANXIETY
     Dates: start: 201301

REACTIONS (5)
  - Panic disorder with agoraphobia [Not Recovered/Not Resolved]
  - Obsessive-compulsive disorder [Not Recovered/Not Resolved]
  - Vomiting [Unknown]
  - Tachycardia [Unknown]
  - Drug ineffective [Unknown]
